FAERS Safety Report 5252644-5 (Version None)
Quarter: 2007Q1

REPORT INFORMATION
  Report Type: 
  Country: None (occurrence: None)
  Receive Date: 20070301
  Receipt Date: 20061031
  Transmission Date: 20070707
  Serious: No
  Sender: FDA-Public Use
  Company Number: US-GLAXOSMITHKLINE-A0625613A

PATIENT
  Age: 53 Year
  Sex: Female

DRUGS (8)
  1. LAMICTAL [Suspect]
     Indication: DEPRESSION
     Dosage: 37.5MG PER DAY
     Route: 048
     Dates: end: 20061031
  2. CYMBALTA [Concomitant]
  3. SEROQUEL [Concomitant]
  4. ELAVIL [Concomitant]
  5. KLONOPIN [Concomitant]
  6. NASONEX [Concomitant]
  7. COMBINATION HORMONE THERAPY [Concomitant]
  8. CRESTOR [Concomitant]

REACTIONS (3)
  - ABDOMINAL PAIN UPPER [None]
  - DRUG ADMINISTRATION ERROR [None]
  - RASH [None]
